FAERS Safety Report 10154483 (Version 2)
Quarter: 2014Q2

REPORT INFORMATION
  Report Type: Spontaneous
  Country: TH (occurrence: TH)
  Receive Date: 20140506
  Receipt Date: 20140515
  Transmission Date: 20141212
  Serious: Yes (Other)
  Sender: FDA-Public Use
  Company Number: TH-MYLANLABS-2014S1009962

PATIENT
  Sex: Female
  Weight: 1.42 kg

DRUGS (2)
  1. INDOMETACIN [Suspect]
     Indication: TOCOLYSIS
     Route: 064
  2. INDOMETACIN [Suspect]
     Indication: OFF LABEL USE
     Route: 064

REACTIONS (2)
  - Cardiac failure [Recovering/Resolving]
  - Foetal exposure during pregnancy [Recovering/Resolving]
